FAERS Safety Report 6744817-7 (Version None)
Quarter: 2010Q2

REPORT INFORMATION
  Report Type: 
  Country: None (occurrence: None)
  Receive Date: 20100527
  Receipt Date: 20100329
  Transmission Date: 20101027
  Serious: No
  Sender: FDA-Public Use
  Company Number: US-BRISTOL-MYERS SQUIBB COMPANY-14996656

PATIENT
  Age: 73 Year
  Sex: Male
  Weight: 77 kg

DRUGS (12)
  1. ONGLYZA [Suspect]
  2. PLAVIX [Concomitant]
  3. GLIPIZIDE [Concomitant]
  4. CARVEDILOL [Concomitant]
  5. LISINOPRIL [Concomitant]
  6. CRESTOR [Concomitant]
  7. NITROSTAT [Concomitant]
  8. INSULIN [Concomitant]
  9. INSULIN GLARGINE [Concomitant]
  10. CLONIDINE [Concomitant]
  11. VITAMIN C [Concomitant]
  12. COENZYME Q10 [Concomitant]

REACTIONS (1)
  - DRUG INEFFECTIVE [None]
